FAERS Safety Report 21259834 (Version 1)
Quarter: 2022Q3

REPORT INFORMATION
  Report Type: Spontaneous
  Country: US (occurrence: US)
  Receive Date: 20220826
  Receipt Date: 20220826
  Transmission Date: 20221027
  Serious: Yes (Other)
  Sender: FDA-Public Use
  Company Number: US-JNJFOC-20220836380

PATIENT
  Age: 53 Year
  Sex: Female

DRUGS (5)
  1. OPSUMIT [Suspect]
     Active Substance: MACITENTAN
     Indication: Pulmonary arterial hypertension
     Route: 065
  2. TYVASO [Suspect]
     Active Substance: TREPROSTINIL
     Indication: Pulmonary arterial hypertension
     Dosage: (TREPROSTINIL SODIUM, CONCENTRATION OF 0.6 MG/ML) DELIVERED BY TYVASO INHALATION DEVICE (TD-300/A)
     Route: 065
     Dates: start: 202204
  3. TYVASO [Suspect]
     Active Substance: TREPROSTINIL
     Dosage: 54 UG (9 BREATHS), FOUR TIMES A DAY (QID) VIA INHALATION (IH) ROUTE
     Route: 065
     Dates: start: 202204
  4. ACETAMINOPHEN [Suspect]
     Active Substance: ACETAMINOPHEN
     Indication: Pulmonary arterial hypertension
  5. IBUPROFEN [Concomitant]
     Active Substance: IBUPROFEN

REACTIONS (1)
  - Liver injury [Unknown]
